FAERS Safety Report 6723946-8 (Version None)
Quarter: 2010Q2

REPORT INFORMATION
  Report Type: 
  Country: None (occurrence: None)
  Receive Date: 20100513
  Receipt Date: 20100106
  Transmission Date: 20101027
  Serious: Yes (Hospitalization, Other)
  Sender: FDA-Public Use
  Company Number: PHHY2010US01209

PATIENT
  Sex: Female

DRUGS (9)
  1. EXJADE [Suspect]
     Indication: LYMPHADENOPATHY
     Dosage: 1500 MG DAILY
     Route: 048
     Dates: start: 20091102
  2. XANAX [Concomitant]
  3. LISINOPRIL [Concomitant]
  4. LASIX [Concomitant]
  5. LEVOXYL [Concomitant]
  6. ALDACTONE [Concomitant]
  7. FOLIC ACID [Concomitant]
  8. VERAPAMIL - SLOW RELEASE [Concomitant]
  9. CELLCEPT [Concomitant]

REACTIONS (3)
  - BLOOD COUNT ABNORMAL [None]
  - DEEP VEIN THROMBOSIS [None]
  - INFLUENZA [None]
